FAERS Safety Report 25455521 (Version 1)
Quarter: 2025Q2

REPORT INFORMATION
  Report Type: Spontaneous
  Country: FR (occurrence: FR)
  Receive Date: 20250619
  Receipt Date: 20250619
  Transmission Date: 20250717
  Serious: Yes (Death, Life-Threatening, Hospitalization, Other)
  Sender: NEXUS PHARMACEUTICALS
  Company Number: FR-Nexus Pharma-000416

PATIENT
  Age: 7 Decade
  Sex: Female

DRUGS (3)
  1. ARSENIC TRIOXIDE [Suspect]
     Active Substance: ARSENIC TRIOXIDE
     Indication: Acute promyelocytic leukaemia
  2. IDARUBICIN [Suspect]
     Active Substance: IDARUBICIN
     Indication: Acute promyelocytic leukaemia
  3. TRETINOIN [Suspect]
     Active Substance: TRETINOIN
     Indication: Acute promyelocytic leukaemia

REACTIONS (7)
  - Respiratory arrest [Fatal]
  - Cardiac arrest [Fatal]
  - Vomiting [Not Recovered/Not Resolved]
  - Arthralgia [Not Recovered/Not Resolved]
  - Wernicke^s encephalopathy [Not Recovered/Not Resolved]
  - Inhibitory drug interaction [Unknown]
  - Quadriparesis [Not Recovered/Not Resolved]
